FAERS Safety Report 10399027 (Version 1)
Quarter: 2014Q1

REPORT INFORMATION
  Report Type: Spontaneous
  Country: US (occurrence: None)
  Receive Date: 20130815
  Receipt Date: 20130815
  Transmission Date: 20141002
  Serious: Yes (Other)
  Sender: FDA-Public Use
  Company Number: ADR-2013-00802

PATIENT
  Sex: Male

DRUGS (2)
  1. BACLOFEN [Suspect]
     Indication: CEREBRAL PALSY
  2. CLONIDINE, INTRATHECAL [Concomitant]

REACTIONS (3)
  - Intracranial hypotension [None]
  - Post lumbar puncture syndrome [None]
  - Muscle spasticity [None]
